FAERS Safety Report 20629862 (Version 1)
Quarter: 2022Q1

REPORT INFORMATION
  Report Type: Spontaneous
  Country: PT (occurrence: PT)
  Receive Date: 20220324
  Receipt Date: 20220324
  Transmission Date: 20220423
  Serious: Yes (Hospitalization, Other)
  Sender: FDA-Public Use
  Company Number: PT-NOVPHSZ-PHHY2019PT156299

PATIENT
  Age: 85 Year
  Sex: Female

DRUGS (3)
  1. OMEPRAZOLE [Suspect]
     Active Substance: OMEPRAZOLE
     Indication: Product used for unknown indication
     Dosage: 40 MILLIGRAM, ONCE A DAY
     Route: 065
  2. ENALAPRIL\LERCANIDIPINE [Suspect]
     Active Substance: ENALAPRIL\LERCANIDIPINE
     Indication: Hypertension
     Dosage: 20/10 MILLIGRAM, ONCE A DAY
     Route: 065
  3. FUROSEMIDE [Suspect]
     Active Substance: FUROSEMIDE
     Indication: Product used for unknown indication
     Dosage: 40 MILLIGRAM, ONCE A DAY
     Route: 065

REACTIONS (6)
  - Colitis microscopic [Recovered/Resolved]
  - Diarrhoea [Recovered/Resolved]
  - Condition aggravated [Recovered/Resolved]
  - Abdominal pain [Recovered/Resolved]
  - Anal incontinence [Unknown]
  - Weight decreased [Recovered/Resolved]
